FAERS Safety Report 7864695-2 (Version None)
Quarter: 2011Q4

REPORT INFORMATION
  Report Type: 
  Country: None (occurrence: None)
  Receive Date: 20111028
  Receipt Date: 20111019
  Transmission Date: 20120403
  Serious: Yes (Life-Threatening, Hospitalization, Other)
  Sender: FDA-Public Use
  Company Number: JP-AMGEN-JPNCT2011021057

PATIENT
  Age: 78 Year
  Sex: Male
  Weight: 62 kg

DRUGS (16)
  1. FLUOROURACIL [Concomitant]
     Route: 041
     Dates: start: 20100910, end: 20101224
  2. PANITUMUMAB [Suspect]
     Indication: COLORECTAL CANCER
     Dosage: 6 MG/KG, Q2WK
     Route: 041
     Dates: start: 20100910, end: 20101105
  3. CORTICOSTEROIDS [Concomitant]
     Indication: PROPHYLAXIS
     Route: 065
  4. HIRUDOID [Concomitant]
     Route: 062
  5. CAMPTOSAR [Suspect]
     Indication: COLORECTAL CANCER
     Route: 041
     Dates: start: 20100910, end: 20101224
  6. TAIPEMIN [Concomitant]
     Dosage: UNK
     Route: 048
  7. SCORPAN [Concomitant]
     Dosage: UNK
     Route: 042
  8. MYSER [Concomitant]
     Dosage: UNK
     Route: 062
  9. FLUOROURACIL [Concomitant]
     Indication: COLORECTAL CANCER
     Route: 040
     Dates: start: 20100910, end: 20101224
  10. DRENISON [Concomitant]
     Dosage: UNK
     Route: 062
  11. ANTIHISTAMINES [Concomitant]
     Indication: PROPHYLAXIS
     Dosage: UNK
     Route: 065
  12. COLONEL [Concomitant]
     Dosage: UNK
     Route: 048
  13. PHELLOBERIN A [Concomitant]
     Dosage: UNK
     Route: 048
  14. ADSORBIN [Concomitant]
     Dosage: UNK
     Route: 048
  15. PANITUMUMAB [Suspect]
     Dosage: 6 MG/KG, Q2WK
     Route: 041
     Dates: start: 20101209, end: 20101224
  16. LEVOLEUCOVORIN CALCIUM [Concomitant]
     Indication: COLORECTAL CANCER
     Route: 041
     Dates: start: 20100910, end: 20101224

REACTIONS (3)
  - CEREBRAL INFARCTION [None]
  - PARONYCHIA [None]
  - DIARRHOEA [None]
